FAERS Safety Report 5730189-3 (Version None)
Quarter: 2008Q2

REPORT INFORMATION
  Report Type: 
  Country: None (occurrence: None)
  Receive Date: 20080505
  Receipt Date: 20080505
  Transmission Date: 20081010
  Serious: Yes (Hospitalization)
  Sender: FDA-Public Use
  Company Number: None

PATIENT
  Age: 73 Year
  Sex: Male
  Weight: 72.6 kg

DRUGS (1)
  1. FUROSEMIDE [Suspect]
     Dates: end: 20080429

REACTIONS (1)
  - HYPOTENSION [None]
